FAERS Safety Report 9387974 (Version 1)
Quarter: 2013Q3

REPORT INFORMATION
  Report Type: Spontaneous
  Country: EG (occurrence: EG)
  Receive Date: 20130708
  Receipt Date: 20130708
  Transmission Date: 20140515
  Serious: Yes (Other)
  Sender: FDA-Public Use
  Company Number: EG-ELI_LILLY_AND_COMPANY-EG201306009296

PATIENT
  Sex: 0

DRUGS (2)
  1. GEMCITABINE HYDROCHLORIDE [Suspect]
     Indication: BLADDER CANCER
     Dosage: 300 MG/M2, UNK
  2. CISPLATIN [Concomitant]
     Indication: BLADDER CANCER
     Dosage: 75 MG/M2, UNK

REACTIONS (1)
  - Cystitis [Unknown]
